FAERS Safety Report 8312250-2 (Version None)
Quarter: 2012Q2

REPORT INFORMATION
  Report Type: 
  Country: None (occurrence: None)
  Receive Date: 20120425
  Receipt Date: 20120418
  Transmission Date: 20120825
  Serious: Yes (Hospitalization)
  Sender: FDA-Public Use
  Company Number: CA-ABBOTT-12P-028-0927977-00

PATIENT
  Sex: Female

DRUGS (4)
  1. HUMIRA [Suspect]
     Indication: CROHN'S DISEASE
  2. HUMIRA [Suspect]
     Indication: FISTULA
     Route: 058
     Dates: start: 20120110
  3. PREDNISONE [Concomitant]
     Indication: PRODUCT USED FOR UNKNOWN INDICATION
     Route: 048
  4. PREDNISONE [Concomitant]
     Route: 048

REACTIONS (5)
  - VOMITING [None]
  - ANAL DILATION PROCEDURE [None]
  - MALAISE [None]
  - ABDOMINAL DISTENSION [None]
  - ABDOMINAL PAIN [None]
